FAERS Safety Report 8166048-9 (Version None)
Quarter: 2012Q1

REPORT INFORMATION
  Report Type: 
  Country: None (occurrence: None)
  Receive Date: 20120227
  Receipt Date: 20110406
  Transmission Date: 20120608
  Serious: Yes (Other)
  Sender: FDA-Public Use
  Company Number: US-MYLANLABS-2011S1004043

PATIENT
  Age: 12 Year
  Sex: Female
  Weight: 34.02 kg

DRUGS (2)
  1. AMNESTEEM [Suspect]
     Indication: ACNE
     Route: 048
     Dates: start: 20110126, end: 20110208
  2. DOXYCYCLINE [Suspect]
     Indication: ACNE
     Route: 048
     Dates: start: 20101001, end: 20101201

REACTIONS (1)
  - BENIGN INTRACRANIAL HYPERTENSION [None]
